FAERS Safety Report 7479852-7 (Version None)
Quarter: 2011Q2

REPORT INFORMATION
  Report Type: 
  Country: None (occurrence: None)
  Receive Date: 20110515
  Receipt Date: 20110502
  Transmission Date: 20111010
  Serious: Yes (Congenital Anomaly)
  Sender: FDA-Public Use
  Company Number: US-MYLANLABS-2011S1009357

PATIENT
  Sex: Male

DRUGS (1)
  1. METHOTREXATE [Suspect]
     Indication: ABORTION INDUCED
     Route: 064

REACTIONS (12)
  - DRUG EXPOSURE DURING PREGNANCY [None]
  - KIDNEY MALFORMATION [None]
  - MULTIPLE CONGENITAL ABNORMALITIES [None]
  - FALLOT'S TETRALOGY [None]
  - MICROGNATHIA [None]
  - POLYDACTYLY [None]
  - RETINOPATHY OF PREMATURITY [None]
  - TALIPES [None]
  - BRONCHOPULMONARY DYSPLASIA [None]
  - DEAFNESS [None]
  - DYSPHAGIA [None]
  - CONGENITAL CENTRAL NERVOUS SYSTEM ANOMALY [None]
